FAERS Safety Report 18273728 (Version 1)
Quarter: 2020Q3

REPORT INFORMATION
  Report Type: Spontaneous
  Country: US (occurrence: US)
  Receive Date: 20200916
  Receipt Date: 20200916
  Transmission Date: 20201103
  Serious: Yes (Death, Life-Threatening, Hospitalization)
  Sender: FDA-Public Use
  Company Number: US-MYLANLABS-2020M1079564

PATIENT
  Age: 5 Decade
  Sex: Male

DRUGS (16)
  1. PREDNISONE. [Suspect]
     Active Substance: PREDNISONE
     Indication: IMMUNE-MEDIATED MYOSITIS
     Dosage: HIGH DOSE STEROID THERAPY
     Route: 048
  2. METHYLPREDNISOLONE. [Suspect]
     Active Substance: METHYLPREDNISOLONE
     Indication: IMMUNE-MEDIATED MYOSITIS
     Dosage: 1000 MILLIGRAM EVERY 24 HOURS FOR FIVE CONSECUTIVE DAYS
     Route: 042
  3. FUROSEMIDE. [Concomitant]
     Active Substance: FUROSEMIDE
     Indication: HYPERTENSION
     Dosage: 20 MILLIGRAM
     Route: 042
  4. PREDNISONE. [Suspect]
     Active Substance: PREDNISONE
     Indication: STEROID THERAPY
  5. SALBUTAMOL [Suspect]
     Active Substance: ALBUTEROL
     Indication: IMMUNE-MEDIATED MYOSITIS
  6. IMMUNOGLOBULIN                     /00025201/ [Suspect]
     Active Substance: HUMAN IMMUNOGLOBULIN G
     Indication: IMMUNE-MEDIATED MYOSITIS
     Dosage: UNK
     Route: 042
  7. METHOTREXATE. [Suspect]
     Active Substance: METHOTREXATE
     Indication: IMMUNE-MEDIATED MYOSITIS
     Dosage: 20 MILLIGRAM, QW
     Route: 065
  8. SALBUTAMOL [Suspect]
     Active Substance: ALBUTEROL
     Indication: DRUG THERAPY
     Dosage: UNK
     Route: 065
  9. UNASYN [Concomitant]
     Active Substance: AMPICILLIN SODIUM\SULBACTAM SODIUM
     Indication: PRODUCT USED FOR UNKNOWN INDICATION
     Dosage: UNK
     Route: 065
  10. CELLCEPT [Suspect]
     Active Substance: MYCOPHENOLATE MOFETIL\MYCOPHENOLATE MOFETIL HYDROCHLORIDE
     Indication: IMMUNE-MEDIATED MYOSITIS
     Dosage: 500 MILLIGRAM 500MG EVERY 12 HOURS
     Route: 065
  11. SOLU?MEDROL [Suspect]
     Active Substance: METHYLPREDNISOLONE SODIUM SUCCINATE
     Indication: IMMUNE-MEDIATED MYOSITIS
     Dosage: UNK
     Route: 042
  12. AZATHIOPRINE. [Suspect]
     Active Substance: AZATHIOPRINE
     Indication: IMMUNE-MEDIATED MYOSITIS
     Dosage: 150 MILLIGRAM, QD
     Route: 065
  13. IMMUNOGLOBULIN                     /00025201/ [Suspect]
     Active Substance: HUMAN IMMUNOGLOBULIN G
     Dosage: 1 G/KG FOR 5 DAYS
     Route: 042
  14. MUCOMYST [Suspect]
     Active Substance: ACETYLCYSTEINE
     Indication: DRUG THERAPY
     Dosage: UNK
     Route: 065
  15. MUCOMYST [Suspect]
     Active Substance: ACETYLCYSTEINE
     Indication: IMMUNE-MEDIATED MYOSITIS
  16. LEVOPHED [Suspect]
     Active Substance: NOREPINEPHRINE BITARTRATE
     Indication: HYPOTENSION
     Dosage: UNK
     Route: 065

REACTIONS (8)
  - Acute respiratory distress syndrome [Unknown]
  - Drug ineffective [Unknown]
  - Respiratory failure [Recovering/Resolving]
  - Cardio-respiratory arrest [Fatal]
  - Asymptomatic COVID-19 [Fatal]
  - Cardiac failure [Recovering/Resolving]
  - Condition aggravated [Recovering/Resolving]
  - Hypoxia [Fatal]
